FAERS Safety Report 7291346-0 (Version None)
Quarter: 2011Q1

REPORT INFORMATION
  Report Type: 
  Country: None (occurrence: None)
  Receive Date: 20110214
  Receipt Date: 20110210
  Transmission Date: 20110831
  Serious: Yes (Hospitalization)
  Sender: FDA-Public Use
  Company Number: A0912908A

PATIENT
  Age: 83 Year
  Sex: Male

DRUGS (6)
  1. PROMACTA [Suspect]
     Dosage: 50MG PER DAY
     Route: 048
     Dates: start: 20100101
  2. TAMSULOSIN [Concomitant]
  3. CLOBETASOL PROPIONATE [Suspect]
     Dates: start: 20110101
  4. WARFARIN [Concomitant]
  5. UNKNOWN [Concomitant]
  6. FUROSEMIDE [Concomitant]

REACTIONS (5)
  - RASH [None]
  - OEDEMA PERIPHERAL [None]
  - DRUG INEFFECTIVE [None]
  - PRURITUS [None]
  - THROMBOSIS [None]
